FAERS Safety Report 13512666 (Version 3)
Quarter: 2017Q3

REPORT INFORMATION
  Report Type: Spontaneous
  Country: JP (occurrence: JP)
  Receive Date: 20170504
  Receipt Date: 20170728
  Transmission Date: 20171127
  Serious: Yes (Other)
  Sender: FDA-Public Use
  Company Number: JP-SUN PHARMACEUTICAL INDUSTRIES LTD-2017RR-139423

PATIENT
  Age: 62 Year
  Sex: Female

DRUGS (3)
  1. ANASTROZOL [Suspect]
     Active Substance: ANASTROZOLE
     Indication: INVASIVE DUCTAL BREAST CARCINOMA
     Dosage: 1 MG, DAILY
     Route: 065
  2. TOREMIFENE [Suspect]
     Active Substance: TOREMIFENE
     Indication: INVASIVE DUCTAL BREAST CARCINOMA
     Dosage: 40 MG, DAILY
     Route: 065
  3. LETROZOLE. [Suspect]
     Active Substance: LETROZOLE
     Indication: INVASIVE DUCTAL BREAST CARCINOMA
     Dosage: 2.5 MG, DAILY
     Route: 065

REACTIONS (2)
  - Disease progression [Unknown]
  - Dizziness [Unknown]
